FAERS Safety Report 6638125-2 (Version None)
Quarter: 2010Q1

REPORT INFORMATION
  Report Type: 
  Country: None (occurrence: None)
  Receive Date: 20100315
  Receipt Date: 20100315
  Transmission Date: 20100710
  Serious: No
  Sender: FDA-Public Use
  Company Number: None

PATIENT

DRUGS (5)
  1. ZOCOR [Suspect]
     Indication: HYPERLIPIDAEMIA
     Dosage: 80 MG QD PO
     Route: 048
     Dates: start: 20090901
  2. ACETAMINOPHEN AND HYDROCODONE BITARTRATE [Concomitant]
  3. SIMVASTATIN [Concomitant]
  4. CYCLOBENZAPRINE [Concomitant]
  5. POLYETHYLENE GLYCOL PWD [Concomitant]

REACTIONS (1)
  - INSOMNIA [None]
